FAERS Safety Report 25761795 (Version 2)
Quarter: 2025Q3

REPORT INFORMATION
  Report Type: Spontaneous
  Country: EU (occurrence: EU)
  Receive Date: 20250904
  Receipt Date: 20250910
  Transmission Date: 20251020
  Serious: Yes (Other)
  Sender: BIOMARIN
  Company Number: EU-BIOMARINAP-DE-2025-168481

PATIENT
  Sex: Female

DRUGS (1)
  1. NAGLAZYME [Suspect]
     Active Substance: GALSULFASE
     Indication: Product used for unknown indication

REACTIONS (5)
  - Partial seizures [Recovered/Resolved]
  - Abnormal behaviour [Recovered/Resolved]
  - Unresponsive to stimuli [Recovered/Resolved]
  - Pupillary light reflex tests abnormal [Recovered/Resolved]
  - Amnesia [Recovered/Resolved]

NARRATIVE: CASE EVENT DATE: 20250401
